FAERS Safety Report 24613937 (Version 2)
Quarter: 2024Q4

REPORT INFORMATION
  Report Type: Spontaneous
  Country: JP (occurrence: JP)
  Receive Date: 20241113
  Receipt Date: 20241209
  Transmission Date: 20250114
  Serious: Yes (Hospitalization, Other)
  Sender: VALIDUS
  Company Number: JP-VALIDUS PHARMACEUTICALS LLC-JP-VDP-2024-019463

PATIENT

DRUGS (6)
  1. FUROSEMIDE [Suspect]
     Active Substance: FUROSEMIDE
     Indication: Chronic kidney disease
     Dosage: 160 MG/DAY
     Route: 048
  2. AMLODIPINE BESYLATE [Suspect]
     Active Substance: AMLODIPINE BESYLATE
     Indication: Chronic kidney disease
     Dosage: 10 MG/DAY
     Route: 048
  3. DOXAZOSIN MESYLATE [Suspect]
     Active Substance: DOXAZOSIN MESYLATE
     Indication: Chronic kidney disease
     Dosage: 4 MG/DAY
     Route: 048
  4. IMIDAPRIL HYDROCHLORIDE [Suspect]
     Active Substance: IMIDAPRIL HYDROCHLORIDE
     Indication: Chronic kidney disease
     Dosage: 5 MG/DAY
     Route: 048
  5. BISOPROLOL FUMARATE [Suspect]
     Active Substance: BISOPROLOL FUMARATE
     Indication: Chronic kidney disease
     Dosage: 0.625 MG/DAY
     Route: 048
  6. VILDAGLIPTIN [Suspect]
     Active Substance: VILDAGLIPTIN
     Indication: Chronic kidney disease
     Dosage: 50 MG/DAY
     Route: 048

REACTIONS (1)
  - BRASH syndrome [Unknown]
